FAERS Safety Report 9663782 (Version 1)
Quarter: 2013Q4

REPORT INFORMATION
  Report Type: Spontaneous
  Country: US (occurrence: None)
  Receive Date: 20131030
  Receipt Date: 20131030
  Transmission Date: 20140711
  Serious: Yes (Life-Threatening, Hospitalization, Disabling, Other)
  Sender: FDA-Public Use
  Company Number: None

PATIENT
  Age: 23 Year
  Sex: Female
  Weight: 64.86 kg

DRUGS (1)
  1. HYDROCORTISONE [Suspect]
     Indication: ADRENAL INSUFFICIENCY
     Dosage: 2 PILLS AM, 1 PILL PM, TWICE DAILY, TAKEN BY MOUTH
     Route: 048
     Dates: start: 20110801, end: 20130610

REACTIONS (10)
  - Malaise [None]
  - Weight decreased [None]
  - Fatigue [None]
  - Speech disorder [None]
  - Visual impairment [None]
  - Movement disorder [None]
  - Headache [None]
  - Nausea [None]
  - Product substitution issue [None]
  - Product quality issue [None]
